FAERS Safety Report 17020228 (Version 2)
Quarter: 2020Q1

REPORT INFORMATION
  Report Type: Spontaneous
  Country: DE (occurrence: DE)
  Receive Date: 20191112
  Receipt Date: 20200310
  Transmission Date: 20200409
  Serious: Yes (Life-Threatening, Hospitalization, Other)
  Sender: FDA-Public Use
  Company Number: DE-LEO PHARMA-326274

PATIENT
  Age: 79 Year
  Sex: Male
  Weight: 80 kg

DRUGS (2)
  1. PICATO [Suspect]
     Active Substance: INGENOL MEBUTATE
     Indication: HYPERKERATOSIS
     Dosage: ONCE DAILY
     Dates: start: 20190909, end: 20190912
  2. PICATO [Suspect]
     Active Substance: INGENOL MEBUTATE
     Dosage: ONCE DAILY
     Dates: start: 20190909, end: 20190912

REACTIONS (2)
  - Incorrect product administration duration [Unknown]
  - Malignant melanoma [Unknown]
